FAERS Safety Report 14326653 (Version 1)
Quarter: 2017Q4

REPORT INFORMATION
  Report Type: Spontaneous
  Country: US (occurrence: US)
  Receive Date: 20171227
  Receipt Date: 20171227
  Transmission Date: 20180321
  Serious: No
  Sender: FDA-Public Use
  Company Number: US-TEVA-2017-US-830603

PATIENT
  Age: 31 Year
  Sex: Male

DRUGS (1)
  1. ESCITALOPRAM [Suspect]
     Active Substance: ESCITALOPRAM OXALATE
     Dates: start: 2013

REACTIONS (3)
  - Product substitution issue [Unknown]
  - Product formulation issue [Unknown]
  - Dizziness [Unknown]

NARRATIVE: CASE EVENT DATE: 2014
